FAERS Safety Report 9456118 (Version 2)
Quarter: 2013Q4

REPORT INFORMATION
  Report Type: Spontaneous
  Country: GB (occurrence: GB)
  Receive Date: 20130813
  Receipt Date: 20131128
  Transmission Date: 20140711
  Serious: Yes (Other)
  Sender: FDA-Public Use
  Company Number: GB-MERCK-1308GBR003969

PATIENT
  Age: 44 Year
  Sex: Female
  Weight: 87 kg

DRUGS (13)
  1. MIRTAZAPINE [Suspect]
     Dosage: 15 MG, UNK
     Route: 048
     Dates: start: 20130514, end: 20130616
  2. ATORVASTATIN [Concomitant]
     Dosage: UNK
     Dates: start: 20130403, end: 20130509
  3. CIPROFLOXACIN [Concomitant]
     Dosage: UNK
     Dates: start: 20130403, end: 20130529
  4. GABAPENTIN [Concomitant]
     Dosage: UNK
     Dates: start: 20130403, end: 20130531
  5. LANSOPRAZOLE [Concomitant]
     Dosage: UNK
     Dates: start: 20130415, end: 20130611
  6. LISINOPRIL [Concomitant]
     Dosage: UNK
     Dates: start: 20130415, end: 20130513
  7. METFORMIN [Concomitant]
     Dosage: UNK
     Dates: start: 20130403, end: 20130529
  8. ORAMORPH [Concomitant]
     Dosage: UNK
     Dates: start: 20130415, end: 20130531
  9. ACETAMINOPHEN [Concomitant]
     Dosage: UNK
     Dates: start: 20130403, end: 20130529
  10. QVAR [Concomitant]
     Dosage: UNK
     Dates: start: 20130403, end: 20130501
  11. TRAMADOL HYDROCHLORIDE [Concomitant]
     Dosage: UNK
     Dates: start: 20130403, end: 20130531
  12. VENLAFAXINE HYDROCHLORIDE [Concomitant]
     Dosage: UNK
     Dates: start: 20130415, end: 20130515
  13. VENTOLIN (ALBUTEROL SULFATE) [Concomitant]
     Dosage: UNK
     Dates: start: 20130403, end: 20130501

REACTIONS (1)
  - Hyperglycaemia [Recovered/Resolved]
